FAERS Safety Report 19189491 (Version 1)
Quarter: 2021Q2

REPORT INFORMATION
  Report Type: Spontaneous
  Country: ES (occurrence: ES)
  Receive Date: 20210428
  Receipt Date: 20210428
  Transmission Date: 20210717
  Serious: Yes (Death, Other)
  Sender: FDA-Public Use
  Company Number: ES-AMGEN-ESPSP2021063758

PATIENT

DRUGS (1)
  1. KYPROLIS [Suspect]
     Active Substance: CARFILZOMIB
     Indication: PRODUCT USED FOR UNKNOWN INDICATION
     Dosage: UNK
     Route: 065

REACTIONS (10)
  - Plasmacytoma [Unknown]
  - Dyspnoea [Recovered/Resolved]
  - Myopathy [Unknown]
  - Disease progression [Unknown]
  - Septic shock [Fatal]
  - Therapy partial responder [Unknown]
  - Acute pulmonary oedema [Unknown]
  - Sudden death [Fatal]
  - Pulmonary embolism [Fatal]
  - Ejection fraction decreased [Unknown]
